FAERS Safety Report 6212486-0 (Version None)
Quarter: 2009Q2

REPORT INFORMATION
  Report Type: 
  Country: None (occurrence: None)
  Receive Date: 20090603
  Receipt Date: 20090526
  Transmission Date: 20091009
  Serious: Yes (Hospitalization)
  Sender: FDA-Public Use
  Company Number: FR-ASTRAZENECA-2009CG01014

PATIENT
  Age: 25581 Day
  Sex: Male

DRUGS (3)
  1. ATACAND [Suspect]
     Indication: HYPERTENSION
     Route: 048
     Dates: start: 20090107, end: 20090401
  2. TRIATEC [Suspect]
     Indication: HYPERTENSION
     Route: 048
     Dates: start: 20081001, end: 20090401
  3. RAPAMUNE [Suspect]
     Indication: PROPHYLAXIS AGAINST TRANSPLANT REJECTION
     Route: 048
     Dates: start: 20090101, end: 20090401

REACTIONS (1)
  - OEDEMA [None]
